FAERS Safety Report 16018010 (Version 2)
Quarter: 2019Q2

REPORT INFORMATION
  Report Type: Report from Study
  Country: None (occurrence: FR)
  Receive Date: 20190228
  Receipt Date: 20190405
  Transmission Date: 20190711
  Serious: Yes (Hospitalization)
  Sender: FDA-Public Use
  Company Number: FR-ABBVIE-18K-056-2317517-00

PATIENT
  Age: 72 Year
  Sex: Female

DRUGS (1)
  1. DUODOPA [Suspect]
     Active Substance: CARBIDOPA\LEVODOPA
     Indication: PARKINSON^S DISEASE
     Dosage: MD : 10 ML ED : 3 ML FLOW RATE : 4.7 ML/H FLOW RATE : 4.9 ML/H
     Route: 050
     Dates: start: 20180214

REACTIONS (15)
  - Abdominal pain [Unknown]
  - Fall [Not Recovered/Not Resolved]
  - Stoma site discharge [Not Recovered/Not Resolved]
  - Stoma site inflammation [Unknown]
  - Stoma site hypergranulation [Not Recovered/Not Resolved]
  - Stoma site erythema [Not Recovered/Not Resolved]
  - Stoma site pain [Unknown]
  - Device breakage [Unknown]
  - Device dislocation [Unknown]
  - Stoma site infection [Not Recovered/Not Resolved]
  - Stoma site haemorrhage [Not Recovered/Not Resolved]
  - Skin discolouration [Unknown]
  - Stoma site odour [Not Recovered/Not Resolved]
  - Medical device site erosion [Unknown]
  - Device leakage [Unknown]

NARRATIVE: CASE EVENT DATE: 2018
